FAERS Safety Report 9423552 (Version 1)
Quarter: 2013Q3

REPORT INFORMATION
  Report Type: Spontaneous
  Country: US (occurrence: US)
  Receive Date: 20130726
  Receipt Date: 20130726
  Transmission Date: 20140515
  Serious: Yes (Death)
  Sender: FDA-Public Use
  Company Number: US-GLAXOSMITHKLINE-A1034623A

PATIENT
  Age: 64 Year
  Sex: Male

DRUGS (4)
  1. VOTRIENT [Suspect]
     Indication: MALIGNANT NEOPLASM OF RENAL PELVIS
     Dosage: 400MG TWICE PER DAY
     Route: 048
     Dates: start: 20130214
  2. HCTZ [Concomitant]
  3. KEFLEX [Concomitant]
  4. INSULIN [Concomitant]

REACTIONS (1)
  - Death [Fatal]
